FAERS Safety Report 21534057 (Version 1)
Quarter: 2022Q4

REPORT INFORMATION
  Report Type: Spontaneous
  Country: US (occurrence: US)
  Receive Date: 20221101
  Receipt Date: 20221101
  Transmission Date: 20230113
  Serious: No
  Sender: FDA-Public Use
  Company Number: US-PARATEK PHARMACEUTICALS, INC.-2022PTK00093

PATIENT
  Sex: Female

DRUGS (2)
  1. NUZYRA [Suspect]
     Active Substance: OMADACYCLINE
     Indication: Mycobacterium abscessus infection
     Dosage: UNK
     Route: 065
  2. NUZYRA [Suspect]
     Active Substance: OMADACYCLINE
     Indication: Pneumonia bacterial
     Dosage: UNK

REACTIONS (3)
  - Abdominal discomfort [Unknown]
  - Intentional product use issue [Unknown]
  - Off label use [Unknown]
